FAERS Safety Report 8067844-9 (Version None)
Quarter: 2012Q1

REPORT INFORMATION
  Report Type: 
  Country: None (occurrence: None)
  Receive Date: 20120124
  Receipt Date: 20120120
  Transmission Date: 20120608
  Serious: Yes (Other)
  Sender: FDA-Public Use
  Company Number: US-PFIZER INC-2012004902

PATIENT
  Sex: Female
  Weight: 58.957 kg

DRUGS (7)
  1. OMEPRAZOLE [Concomitant]
     Dosage: 20 MG, UNK
  2. AMBIEN [Concomitant]
     Dosage: UNK
  3. OXYCODONE [Concomitant]
     Dosage: UNK
  4. ALPRAZOLAM [Concomitant]
     Dosage: UNK
  5. EFFEXOR [Suspect]
     Indication: DEPRESSION
     Dosage: 150 MG, 3X/DAY
     Route: 048
     Dates: start: 20060101
  6. HYDROCODONE [Concomitant]
     Dosage: UNK
  7. METHOCARBAMOL [Concomitant]
     Dosage: UNK

REACTIONS (5)
  - MUSCULOSKELETAL PAIN [None]
  - ACCIDENT [None]
  - SURGERY [None]
  - NECK PAIN [None]
  - PAIN IN EXTREMITY [None]
